FAERS Safety Report 14081819 (Version 1)
Quarter: 2017Q4

REPORT INFORMATION
  Report Type: Spontaneous
  Country: US (occurrence: None)
  Receive Date: 20171013
  Receipt Date: 20171013
  Transmission Date: 20180321
  Serious: No
  Sender: FDA-Public Use
  Company Number: None

PATIENT
  Sex: Female

DRUGS (1)
  1. PROGESTERONE. [Suspect]
     Active Substance: PROGESTERONE

REACTIONS (11)
  - Vomiting [None]
  - Headache [None]
  - Uterine haemorrhage [None]
  - Consciousness fluctuating [None]
  - Economic problem [None]
  - Pain [None]
  - Dizziness [None]
  - Drug dispensing error [None]
  - Drug dose omission [None]
  - Insurance issue [None]
  - Condition aggravated [None]

NARRATIVE: CASE EVENT DATE: 2017
